FAERS Safety Report 6525092-5 (Version None)
Quarter: 2010Q1

REPORT INFORMATION
  Report Type: 
  Country: None (occurrence: None)
  Receive Date: 20100104
  Receipt Date: 20091217
  Transmission Date: 20100710
  Serious: Yes (Hospitalization)
  Sender: FDA-Public Use
  Company Number: DK-ROCHE-671973

PATIENT
  Sex: Female

DRUGS (7)
  1. BEVACIZUMAB [Suspect]
     Indication: GLIOBLASTOMA MULTIFORME
     Dosage: FREQUENCY: Q2WK
     Route: 065
     Dates: start: 20090518, end: 20090810
  2. BEVACIZUMAB [Suspect]
     Dosage: FREQUENCY: Q2WK
     Route: 065
     Dates: start: 20090824
  3. IRINOTECAN [Suspect]
     Indication: GLIOBLASTOMA MULTIFORME
     Route: 065
     Dates: start: 20090518
  4. PREDNISOLONE [Concomitant]
     Dosage: TDD: 10 - 15 MG
     Dates: start: 20090518, end: 20091124
  5. PREDNISOLONE [Concomitant]
     Dates: start: 20091125
  6. ATROPIN [Concomitant]
     Dosage: STUDY PRE-MEDICATION
     Dates: start: 20090518
  7. ZOFRAN [Concomitant]
     Dosage: STUDY PRE-MEDICATION
     Dates: start: 20090518

REACTIONS (1)
  - DISEASE PROGRESSION [None]
